FAERS Safety Report 9595330 (Version 1)
Quarter: 2013Q4

REPORT INFORMATION
  Report Type: Spontaneous
  Country: US (occurrence: US)
  Receive Date: 20131004
  Receipt Date: 20131004
  Transmission Date: 20140711
  Serious: No
  Sender: FDA-Public Use
  Company Number: US-PFIZER INC-2013282233

PATIENT
  Age: 53 Year
  Sex: Female

DRUGS (10)
  1. RELPAX [Suspect]
     Indication: MIGRAINE
     Dosage: 40 MG, AS NEEDED
     Dates: end: 2012
  2. CARBIDOPA \ LEVODOPA [Suspect]
     Indication: FIBROMYALGIA
     Dosage: LEVODOPA 100 MG / CARBIDOPA 25MG 1X/DAY
  3. EQUATE PAIN RELIEVER EXTRA STRENGTH [Suspect]
     Indication: MIGRAINE
     Dosage: UNK
  4. METOPROLOL TARTRATE [Concomitant]
     Indication: MITRAL VALVE PROLAPSE
     Dosage: 50 MG, 2X/DAY
  5. ALBUTEROL [Concomitant]
     Indication: ASTHMA
     Dosage: UNK, AS NEEDED
  6. LANTUS [Concomitant]
     Indication: DIABETES MELLITUS
     Dosage: 30 IU, 2X/DAY
  7. METFORMIN [Concomitant]
     Indication: DIABETES MELLITUS
     Dosage: 500 MG, 2X/DAY
  8. TRAMADOL [Concomitant]
     Dosage: 50 MG, 2X/DAY
  9. MELOXICAM [Concomitant]
     Indication: INFLAMMATION
     Dosage: 15 MG, DAILY
  10. MELOXICAM [Concomitant]
     Indication: FIBROMYALGIA

REACTIONS (3)
  - Intentional drug misuse [Unknown]
  - Off label use [Unknown]
  - Drug ineffective [Unknown]
